FAERS Safety Report 6524043-7 (Version None)
Quarter: 2009Q4

REPORT INFORMATION
  Report Type: 
  Country: None (occurrence: None)
  Receive Date: 20091231
  Receipt Date: 20091222
  Transmission Date: 20100525
  Serious: Yes (Other)
  Sender: FDA-Public Use
  Company Number: PHHY2009JP58802

PATIENT
  Age: 11 Year
  Sex: Male

DRUGS (1)
  1. CYCLOSPORINE [Suspect]

REACTIONS (4)
  - BONE MARROW FAILURE [None]
  - INFECTION [None]
  - SMALL INTESTINE ULCER [None]
  - THROMBOTIC MICROANGIOPATHY [None]
